FAERS Safety Report 4477382-8 (Version None)
Quarter: 2004Q4

REPORT INFORMATION
  Report Type: 
  Country: None (occurrence: None)
  Receive Date: 20041013
  Receipt Date: 20040922
  Transmission Date: 20050328
  Serious: Yes (Other)
  Sender: FDA-Public Use
  Company Number: US_0409106031

PATIENT
  Age: 14 Month
  Sex: Female

DRUGS (1)
  1. PROZAC [Suspect]
     Dosage: 20 MG/1 DAY
     Dates: start: 20040922, end: 20040922

REACTIONS (3)
  - ACCIDENTAL EXPOSURE [None]
  - OVERDOSE [None]
  - VOMITING [None]
